FAERS Safety Report 14444957 (Version 2)
Quarter: 2018Q1

REPORT INFORMATION
  Report Type: Spontaneous
  Country: US (occurrence: US)
  Receive Date: 20180126
  Receipt Date: 20180313
  Transmission Date: 20180509
  Serious: No
  Sender: FDA-Public Use
  Company Number: US-PFIZER INC-2018028996

PATIENT
  Age: 55 Year
  Sex: Female

DRUGS (1)
  1. EUCRISA [Suspect]
     Active Substance: CRISABOROLE
     Indication: DERMATITIS ATOPIC
     Dosage: UNK, 2X/DAY (APPLY TO AFFECTED AREAS TRUNKI FACE BID)
     Route: 061
     Dates: start: 20171129, end: 20180110

REACTIONS (5)
  - Pruritus [Unknown]
  - Condition aggravated [Unknown]
  - Paraesthesia [Unknown]
  - Erythema [Unknown]
  - Inflammation [Unknown]
